FAERS Safety Report 4720475-8 (Version None)
Quarter: 2005Q3

REPORT INFORMATION
  Report Type: 
  Country: None (occurrence: None)
  Receive Date: 20050719
  Receipt Date: 20050425
  Transmission Date: 20060218
  Serious: Yes (Hospitalization, Other)
  Sender: FDA-Public Use
  Company Number: 2005050284

PATIENT
  Age: 53 Year
  Sex: Female
  Weight: 83.4619 kg

DRUGS (5)
  1. CELEBREX [Suspect]
     Indication: SCIATICA
     Dosage: 200 MG (200 MG, 1 IN 1 D), ORAL
     Route: 048
     Dates: start: 20050321, end: 20050322
  2. HYZAAR (HYDROCHLOROTHIAZIDE, LOSARTAN POTASSUM) [Concomitant]
  3. CARVEDILOL [Concomitant]
  4. QUINAPRIL HCL [Concomitant]
  5. ULTRACET [Concomitant]

REACTIONS (1)
  - CHEST PAIN [None]
